FAERS Safety Report 8128093-9 (Version None)
Quarter: 2012Q1

REPORT INFORMATION
  Report Type: 
  Country: None (occurrence: None)
  Receive Date: 20120210
  Receipt Date: 20120201
  Transmission Date: 20120608
  Serious: Yes (Hospitalization)
  Sender: FDA-Public Use
  Company Number: ES-ABBOTT-12P-144-0900767-00

PATIENT
  Age: 51 Year
  Sex: Male
  Weight: 90 kg

DRUGS (5)
  1. SUMIAL [Concomitant]
     Indication: HEPATIC CIRRHOSIS
     Route: 048
  2. HUMIRA [Suspect]
     Indication: PSORIASIS
     Route: 058
     Dates: start: 20100810
  3. ALDACTONE [Concomitant]
     Indication: HEPATIC CIRRHOSIS
     Route: 048
  4. HUMIRA [Suspect]
     Indication: PSORIATIC ARTHROPATHY
  5. OMEPRAZOLE [Concomitant]
     Indication: HEPATIC CIRRHOSIS
     Route: 048

REACTIONS (8)
  - SCROTAL SWELLING [None]
  - PURULENT DISCHARGE [None]
  - URETHRAL DISCHARGE [None]
  - SCROTAL ABSCESS [None]
  - SCROTAL PAIN [None]
  - LIVER DISORDER [None]
  - SCROTAL ERYTHEMA [None]
  - PENILE ABSCESS [None]
